FAERS Safety Report 9045845 (Version 1)
Quarter: 2013Q1

REPORT INFORMATION
  Report Type: Report from Study
  Country: US (occurrence: US)
  Receive Date: 20130201
  Receipt Date: 20130201
  Transmission Date: 20140127
  Serious: No
  Sender: FDA-Public Use
  Company Number: US-ABBOTT-12P-163-1016870-00

PATIENT
  Age: 39 Year
  Sex: Male

DRUGS (7)
  1. HUMIRA [Suspect]
     Indication: CROHN^S DISEASE
     Route: 058
     Dates: start: 20121023
  2. FENTANYL [Concomitant]
     Indication: PAIN
     Dosage: PATCH
  3. HYDROMORPHONE [Concomitant]
     Indication: PAIN
  4. VALIUM [Concomitant]
     Indication: ANXIETY
  5. GABAPENTIN [Concomitant]
     Indication: ANXIETY
     Dosage: 2-3 DAILY
  6. PRILOSEC [Concomitant]
     Indication: GASTRIC DISORDER
  7. BENTYL [Concomitant]
     Indication: GASTRIC DISORDER

REACTIONS (2)
  - Sinus congestion [Not Recovered/Not Resolved]
  - Nasopharyngitis [Not Recovered/Not Resolved]
